FAERS Safety Report 7374363-1 (Version None)
Quarter: 2011Q1

REPORT INFORMATION
  Report Type: 
  Country: None (occurrence: None)
  Receive Date: 20110225
  Receipt Date: 20110110
  Transmission Date: 20110831
  Serious: No
  Sender: FDA-Public Use
  Company Number: 321433

PATIENT
  Age: 46 Year
  Sex: Female

DRUGS (1)
  1. VICTOZA [Suspect]
     Indication: GLUCOSE TOLERANCE IMPAIRED
     Dosage: SUBCUTANEOUS
     Route: 058
     Dates: start: 20100701

REACTIONS (1)
  - WEIGHT DECREASED [None]
